FAERS Safety Report 24323357 (Version 1)
Quarter: 2024Q3

REPORT INFORMATION
  Report Type: Spontaneous
  Country: US (occurrence: None)
  Receive Date: 20240914
  Receipt Date: 20240914
  Transmission Date: 20241017
  Serious: No
  Sender: Public
  Company Number: None

PATIENT
  Age: 78 Year
  Sex: Female

DRUGS (1)
  1. CAPECITABINE [Suspect]
     Active Substance: CAPECITABINE

REACTIONS (5)
  - Back pain [None]
  - Asthenia [None]
  - Fatigue [None]
  - Neuralgia [None]
  - Palmar-plantar erythrodysaesthesia syndrome [None]
